FAERS Safety Report 6229142-5 (Version None)
Quarter: 2009Q2

REPORT INFORMATION
  Report Type: 
  Country: None (occurrence: None)
  Receive Date: 20090601
  Receipt Date: 20090305
  Transmission Date: 20091009
  Serious: No
  Sender: FDA-Public Use
  Company Number: US200901001119

PATIENT
  Age: 61 Year
  Sex: Female

DRUGS (7)
  1. BYETTA [Suspect]
     Indication: TYPE 2 DIABETES MELLITUS
     Dosage: 5 UG, SUBCUTANEOUS; 10 UG, 2/D
     Route: 058
     Dates: start: 20080326, end: 20080520
  2. BYETTA [Suspect]
     Indication: TYPE 2 DIABETES MELLITUS
     Dosage: 5 UG, SUBCUTANEOUS; 10 UG, 2/D
     Route: 058
     Dates: start: 20080521, end: 20081225
  3. EXENATIDE 5MCG PEN, DISPOSABLE DEVICE (EXENATIDEPEN (5MCG)) PEN, DISPO [Concomitant]
  4. METFORMIN HCL [Concomitant]
  5. DIOVAN (HYDROCHLOROTHIAZIDE, VALSARTAN) [Concomitant]
  6. ZOCOR [Concomitant]
  7. GLUCOVANCE [Concomitant]

REACTIONS (1)
  - BLOOD GLUCOSE DECREASED [None]
